FAERS Safety Report 23749230 (Version 1)
Quarter: 2024Q2

REPORT INFORMATION
  Report Type: Spontaneous
  Country: US (occurrence: US)
  Receive Date: 20240416
  Receipt Date: 20240416
  Transmission Date: 20240716
  Serious: No
  Sender: FDA-Public Use
  Company Number: US-MYLANLABS-2024M1029203

PATIENT
  Sex: Male

DRUGS (1)
  1. BREYNA [Suspect]
     Active Substance: BUDESONIDE\FORMOTEROL FUMARATE
     Indication: Product used for unknown indication
     Dosage: 160/4.5 MICROGRAM
     Route: 055

REACTIONS (4)
  - Device delivery system issue [Unknown]
  - Device issue [Unknown]
  - Product storage error [Unknown]
  - Wrong technique in product usage process [Unknown]
